FAERS Safety Report 8379500-8 (Version None)
Quarter: 2012Q2

REPORT INFORMATION
  Report Type: 
  Country: None (occurrence: None)
  Receive Date: 20120523
  Receipt Date: 20120516
  Transmission Date: 20120825
  Serious: No
  Sender: FDA-Public Use
  Company Number: CN-JNJFOC-20120502869

PATIENT
  Sex: Female
  Weight: 70 kg

DRUGS (1)
  1. ITRACONAZOLE [Suspect]
     Indication: ANTIFUNGAL PROPHYLAXIS
     Route: 048
     Dates: start: 20110320, end: 20110327

REACTIONS (3)
  - RASH MACULO-PAPULAR [None]
  - PRURITUS [None]
  - ERYTHEMA [None]
